FAERS Safety Report 17043436 (Version 1)
Quarter: 2019Q4

REPORT INFORMATION
  Report Type: Spontaneous
  Country: US (occurrence: US)
  Receive Date: 20191118
  Receipt Date: 20191118
  Transmission Date: 20200122
  Serious: Yes (Other)
  Sender: FDA-Public Use
  Company Number: US-THERAPEUTICSMD-2019TMD03222

PATIENT
  Age: 66 Year
  Sex: Female
  Weight: 48.53 kg

DRUGS (1)
  1. BIJUVA [Suspect]
     Active Substance: ESTRADIOL\PROGESTERONE
     Dosage: 1/100 MG, 1X/DAY IN THE MORNING
     Route: 048
     Dates: start: 201908, end: 2019

REACTIONS (6)
  - Endometrial hyperplasia [Unknown]
  - Endometrial cancer [Unknown]
  - Uterine polyp [Unknown]
  - Endometrial thickening [Not Recovered/Not Resolved]
  - Vaginal haemorrhage [Recovered/Resolved]
  - Uterine leiomyoma [Not Recovered/Not Resolved]

NARRATIVE: CASE EVENT DATE: 20190909
